FAERS Safety Report 12941559 (Version 1)
Quarter: 2016Q4

REPORT INFORMATION
  Report Type: Spontaneous
  Country: US (occurrence: US)
  Receive Date: 20161115
  Receipt Date: 20161115
  Transmission Date: 20170207
  Serious: No
  Sender: FDA-Public Use
  Company Number: US-ASTRAZENECA-2016SF16002

PATIENT
  Age: 70 Year
  Sex: Female
  Weight: 67.6 kg

DRUGS (1)
  1. PULMICORT FLEXHALER [Suspect]
     Active Substance: BUDESONIDE
     Indication: ASTHMA
     Dosage: 180 MCG ONE PUFF A DAY OR AS NEEDED
     Route: 055
     Dates: start: 2014

REACTIONS (3)
  - Off label use [Unknown]
  - Product use issue [Unknown]
  - Nasal congestion [Unknown]

NARRATIVE: CASE EVENT DATE: 2014
